FAERS Safety Report 8606050-3 (Version None)
Quarter: 2012Q3

REPORT INFORMATION
  Report Type: 
  Country: None (occurrence: None)
  Receive Date: 20120820
  Receipt Date: 20120810
  Transmission Date: 20120928
  Serious: Yes (Other)
  Sender: FDA-Public Use
  Company Number: US-ABBOTT-12P-163-0967682-00

PATIENT
  Age: 39 Year
  Sex: Female

DRUGS (10)
  1. ZYRTEC [Concomitant]
     Indication: HYPERSENSITIVITY
  2. HUMIRA [Suspect]
  3. GENERIC FOR PRILOSEC [Concomitant]
     Indication: PRODUCT USED FOR UNKNOWN INDICATION
     Dosage: DAILY
     Route: 048
  4. ALBUTEROL [Concomitant]
     Indication: ASTHMA
  5. BCP [Concomitant]
     Indication: PRODUCT USED FOR UNKNOWN INDICATION
  6. NASONEX [Concomitant]
     Indication: HYPERSENSITIVITY
  7. HUMIRA [Suspect]
  8. HUMIRA [Suspect]
     Indication: RHEUMATOID ARTHRITIS
     Dates: start: 20060101
  9. METHOTREXATE [Suspect]
     Indication: PRODUCT USED FOR UNKNOWN INDICATION
  10. METHOTREXATE [Suspect]
     Dates: end: 20120810

REACTIONS (12)
  - INJECTION SITE PAIN [None]
  - ADVERSE DRUG REACTION [None]
  - LUNG DISORDER [None]
  - ARTHRALGIA [None]
  - INJECTION SITE HAEMATOMA [None]
  - INCORRECT ROUTE OF DRUG ADMINISTRATION [None]
  - AMNIOTIC FLUID VOLUME DECREASED [None]
  - JOINT STIFFNESS [None]
  - INJECTION SITE INDURATION [None]
  - MALAISE [None]
  - WRONG TECHNIQUE IN DRUG USAGE PROCESS [None]
  - DRUG EFFECT DECREASED [None]
